FAERS Safety Report 10704715 (Version 2)
Quarter: 2015Q1

REPORT INFORMATION
  Report Type: Report from Study
  Country: US (occurrence: US)
  Receive Date: 20150112
  Receipt Date: 20150120
  Transmission Date: 20150721
  Serious: Yes (Hospitalization, Other)
  Sender: FDA-Public Use
  Company Number: US-ABBVIE-15K-163-1329888-00

PATIENT
  Sex: Female
  Weight: 72.64 kg

DRUGS (9)
  1. TYLENOL [Suspect]
     Active Substance: ACETAMINOPHEN
     Indication: PYREXIA
     Route: 065
     Dates: start: 201407, end: 201407
  2. COUMADIN [Concomitant]
     Active Substance: WARFARIN SODIUM
     Indication: FACTOR V DEFICIENCY
  3. ACETYLCYSTEINE. [Suspect]
     Active Substance: ACETYLCYSTEINE
     Indication: DRUG DETOXIFICATION
     Route: 065
     Dates: start: 201407, end: 201407
  4. CELEXA [Concomitant]
     Active Substance: CITALOPRAM HYDROBROMIDE
     Indication: DEPRESSION
  5. MORPHINE [Concomitant]
     Active Substance: MORPHINE
     Indication: PAIN
  6. NORCO [Suspect]
     Active Substance: ACETAMINOPHEN\HYDROCODONE BITARTRATE
     Indication: PRODUCT USED FOR UNKNOWN INDICATION
     Route: 065
     Dates: start: 201407, end: 201407
  7. HUMIRA [Suspect]
     Active Substance: ADALIMUMAB
     Indication: PSORIASIS
  8. LOSARTAN [Suspect]
     Active Substance: LOSARTAN
     Indication: HYPERTENSION
     Route: 065
     Dates: end: 20141216
  9. HUMIRA [Suspect]
     Active Substance: ADALIMUMAB
     Indication: RHEUMATOID ARTHRITIS
     Route: 065
     Dates: start: 201311, end: 201404

REACTIONS (20)
  - Urinary tract obstruction [Recovered/Resolved]
  - Anaemia [Recovered/Resolved]
  - Kidney infection [Recovered/Resolved]
  - Post procedural complication [Recovering/Resolving]
  - Ovarian neoplasm [Recovered/Resolved]
  - Weight decreased [Not Recovered/Not Resolved]
  - Ovarian mass [Recovered/Resolved]
  - Rash erythematous [Recovered/Resolved]
  - Dyspnoea [Recovered/Resolved]
  - Kidney enlargement [Recovering/Resolving]
  - Bladder prolapse [Recovered/Resolved]
  - Urinary incontinence [Not Recovered/Not Resolved]
  - Incoherent [Recovered/Resolved]
  - Abdominal distension [Recovered/Resolved]
  - Gastric prolapse [Recovered/Resolved]
  - Hydronephrosis [Recovering/Resolving]
  - Pelvic prolapse [Recovered/Resolved]
  - Adhesion [Recovered/Resolved]
  - Blood pressure decreased [Recovered/Resolved]
  - Speech disorder [Recovered/Resolved]

NARRATIVE: CASE EVENT DATE: 2013
